FAERS Safety Report 6258392-7 (Version None)
Quarter: 2009Q3

REPORT INFORMATION
  Report Type: 
  Country: None (occurrence: None)
  Receive Date: 20090702
  Receipt Date: 20090702
  Transmission Date: 20100115
  Serious: Yes (Hospitalization)
  Sender: FDA-Public Use
  Company Number: None

PATIENT
  Age: 43 Year
  Sex: Female
  Weight: 88.4514 kg

DRUGS (7)
  1. ALLI [Suspect]
     Indication: DIVERTICULITIS
     Dosage: ONCE 3 TIMES DAILY PO
     Route: 048
     Dates: start: 20090601, end: 20090625
  2. MORPHINE [Concomitant]
  3. ZOFRAN [Concomitant]
  4. HEPARIN [Concomitant]
  5. ANTIBIOTICS [Concomitant]
  6. ANALGESICS [Concomitant]
  7. ANTI-NAUSEA MEDICATION [Concomitant]

REACTIONS (1)
  - DIVERTICULITIS [None]
